FAERS Safety Report 8311468-2 (Version None)
Quarter: 2012Q2

REPORT INFORMATION
  Report Type: 
  Country: None (occurrence: None)
  Receive Date: 20120425
  Receipt Date: 20120419
  Transmission Date: 20120825
  Serious: Yes (Death, Hospitalization, Other)
  Sender: FDA-Public Use
  Company Number: PHHY2012JP032537

PATIENT
  Age: 37 Year
  Sex: Male

DRUGS (5)
  1. ADRENAL CORTEX EXTRACT INJ [Concomitant]
     Indication: RENAL AND PANCREAS TRANSPLANT REJECTION
  2. TACROLIMUS [Suspect]
     Indication: PROPHYLAXIS AGAINST TRANSPLANT REJECTION
     Dosage: UNK UKN, UNK
  3. NEORAL [Suspect]
     Dosage: UNK UKN, UNK
  4. SIMULECT [Suspect]
     Indication: PROPHYLAXIS AGAINST TRANSPLANT REJECTION
     Dosage: 20 MG, UNK
     Route: 042
  5. MYCOPHENOLATE MOFETIL [Concomitant]
     Indication: RENAL AND PANCREAS TRANSPLANT REJECTION
     Dosage: UNK UKN, UNK

REACTIONS (4)
  - GRAFT VERSUS HOST DISEASE [None]
  - PNEUMONIA [None]
  - THROMBOTIC MICROANGIOPATHY [None]
  - POST TRANSPLANT DISTAL LIMB SYNDROME [None]
